FAERS Safety Report 9226493 (Version 5)
Quarter: 2013Q4

REPORT INFORMATION
  Report Type: Spontaneous
  Country: CA (occurrence: CA)
  Receive Date: 20130412
  Receipt Date: 20131113
  Transmission Date: 20140711
  Serious: Yes (Other)
  Sender: FDA-Public Use
  Company Number: CA-AMGEN-CANSP2013017066

PATIENT
  Age: 66 Year
  Sex: Female
  Weight: 80 kg

DRUGS (24)
  1. ENBREL [Suspect]
     Indication: RHEUMATOID ARTHRITIS
     Dosage: 50 MG/ML, QWK
     Route: 065
     Dates: start: 20130207
  2. METHOTREXATE [Suspect]
     Indication: PRODUCT USED FOR UNKNOWN INDICATION
     Dosage: 0.8 MG, QWK
     Route: 065
  3. SULFASALAZINE [Suspect]
     Indication: PAIN
     Dosage: UNK
     Route: 065
  4. LOSEC                              /00661201/ [Concomitant]
     Dosage: 20 MG, BID
  5. ADALAT XL [Concomitant]
     Dosage: 30 MG, 4 TABLETS OD
  6. DIOVAN [Concomitant]
     Dosage: 160 MG, 1 TABLET
  7. RISEDRONATE [Concomitant]
     Dosage: UNK UNK, QWK
  8. TENORMIN [Concomitant]
     Dosage: UNK UNK, BID
  9. TRAMACET [Concomitant]
     Dosage: FOUR TABLETS DAILY
  10. BRICANYL [Concomitant]
     Dosage: 0.5 MG, AS NECESSARY
  11. BENTYL [Concomitant]
     Dosage: 20 MG, TID
  12. FIORINAL                           /00090401/ [Concomitant]
     Dosage: 50 MG, AS NECESSARY
  13. ARTHOTEC [Concomitant]
     Dosage: 75-200MG BID
  14. TRIFLUOPERAZINE [Concomitant]
     Indication: GASTROINTESTINAL PAIN
     Dosage: 2 MG, QHS
  15. FOLIC ACID [Concomitant]
     Dosage: 5 MG, UNK
  16. VENLAFAXIN [Concomitant]
     Dosage: 37.5 MG 4 TABLETS, QD
  17. CYCLOBENZAPRINE [Concomitant]
     Dosage: 10 MG, QHS
  18. XANAX [Concomitant]
     Dosage: 0.25 MG, UNK
  19. CIDROXAL [Concomitant]
     Dosage: FOR EYES
  20. NASONEX [Concomitant]
     Dosage: UNK
  21. TIMOLOL MALEATE [Concomitant]
     Dosage: 5 MG, BOTH EYES EVERYDAY
     Route: 047
  22. BENTYLOL [Concomitant]
     Dosage: 20 MG, TID
  23. PREDNISOLONE [Concomitant]
     Dosage: UNK
     Route: 047
  24. TRIDURAL [Concomitant]
     Dosage: 100 MG, TID

REACTIONS (18)
  - Fatigue [Not Recovered/Not Resolved]
  - Activities of daily living impaired [Not Recovered/Not Resolved]
  - Pain [Not Recovered/Not Resolved]
  - Tremor [Not Recovered/Not Resolved]
  - Anaemia [Not Recovered/Not Resolved]
  - Cataract [Unknown]
  - Headache [Not Recovered/Not Resolved]
  - Rash [Not Recovered/Not Resolved]
  - Somnolence [Not Recovered/Not Resolved]
  - Bronchitis chronic [Not Recovered/Not Resolved]
  - Hiatus hernia [Not Recovered/Not Resolved]
  - Gastrooesophageal reflux disease [Not Recovered/Not Resolved]
  - Fibromyalgia [Not Recovered/Not Resolved]
  - Thyroid neoplasm [Not Recovered/Not Resolved]
  - Hypertension [Not Recovered/Not Resolved]
  - Sinus headache [Not Recovered/Not Resolved]
  - Migraine [Not Recovered/Not Resolved]
  - Skin odour abnormal [Not Recovered/Not Resolved]
